FAERS Safety Report 15691105 (Version 2)
Quarter: 2018Q4

REPORT INFORMATION
  Report Type: Spontaneous
  Country: NL (occurrence: NL)
  Receive Date: 20181205
  Receipt Date: 20181206
  Transmission Date: 20190205
  Serious: Yes (Death, Hospitalization, Other)
  Sender: FDA-Public Use
  Company Number: NL-SAKK-2018SA329901AA

PATIENT
  Age: 14 Year
  Sex: Male
  Weight: 69 kg

DRUGS (7)
  1. VALPROIC ACID. [Concomitant]
     Active Substance: VALPROIC ACID
     Route: 065
  2. MACROGOL [Concomitant]
     Active Substance: POLYETHYLENE GLYCOLS
     Dosage: 10 G, QD
     Route: 065
     Dates: start: 20170920
  3. LAMOTRIGINE. [Concomitant]
     Active Substance: LAMOTRIGINE
     Dosage: UNK, QD
     Route: 065
     Dates: start: 20170920
  4. MELATONINE [Concomitant]
     Active Substance: MELATONIN
     Dosage: 3 MG, QD
     Route: 065
     Dates: start: 20171117
  5. CLOBAZAM. [Concomitant]
     Active Substance: CLOBAZAM
     Dosage: 5 MG, QD
     Route: 065
     Dates: start: 20171026
  6. MYOZYME [Suspect]
     Active Substance: ALGLUCOSIDASE ALFA
     Indication: GLYCOGEN STORAGE DISEASE TYPE II
     Dosage: 40 MG, QW
     Route: 041
     Dates: start: 20040624, end: 20181130
  7. LEVETIRACETAM. [Concomitant]
     Active Substance: LEVETIRACETAM
     Route: 065

REACTIONS (5)
  - Hypotonia [Fatal]
  - Status epilepticus [Unknown]
  - Sputum retention [Fatal]
  - Seizure [Fatal]
  - Respiratory failure [Fatal]
